FAERS Safety Report 16041333 (Version 1)
Quarter: 2019Q1

REPORT INFORMATION
  Report Type: Spontaneous
  Country: US (occurrence: US)
  Receive Date: 20190306
  Receipt Date: 20190306
  Transmission Date: 20190418
  Serious: No
  Sender: FDA-Public Use
  Company Number: US-AKORN PHARMACEUTICALS-2018AKN01917

PATIENT
  Age: 21 Year
  Sex: Female

DRUGS (1)
  1. MYORISAN [Suspect]
     Active Substance: ISOTRETINOIN
     Dosage: 20 MG, 2X/DAY,

REACTIONS (6)
  - C-reactive protein increased [Unknown]
  - Muscle injury [Unknown]
  - Myalgia [Unknown]
  - Back pain [Unknown]
  - Sleep disorder [Unknown]
  - Arthralgia [Unknown]
